FAERS Safety Report 9979096 (Version 1)
Quarter: 2014Q1

REPORT INFORMATION
  Report Type: Report from Study
  Country: US (occurrence: US)
  Receive Date: 20140306
  Receipt Date: 20140306
  Transmission Date: 20141002
  Serious: No
  Sender: FDA-Public Use
  Company Number: US-ABBVIE-13P-163-1173681-00

PATIENT
  Age: 66 Year
  Sex: Female

DRUGS (8)
  1. HUMIRA [Suspect]
     Indication: COLITIS ULCERATIVE
     Dates: start: 20130910
  2. MENEST [Concomitant]
     Indication: MENOPAUSE
     Dosage: AN HRT EXTRACT OF YAM
  3. LOMOTIL [Concomitant]
     Indication: PRODUCT USED FOR UNKNOWN INDICATION
  4. CARDIA [Concomitant]
     Indication: HYPERTENSION
  5. SYNTHROID [Concomitant]
     Indication: THYROID DISORDER
  6. AMITRIPTYLINE [Concomitant]
     Indication: PRODUCT USED FOR UNKNOWN INDICATION
     Dosage: AT BEDTIME
  7. OPIUM [Concomitant]
     Indication: PAIN
  8. OPIUM [Concomitant]
     Indication: ABDOMINAL PAIN

REACTIONS (1)
  - Diarrhoea [Not Recovered/Not Resolved]
